FAERS Safety Report 15744694 (Version 1)
Quarter: 2018Q4

REPORT INFORMATION
  Report Type: Report from Study
  Country: SE (occurrence: SE)
  Receive Date: 20181220
  Receipt Date: 20181220
  Transmission Date: 20190205
  Serious: Yes (Death, Hospitalization, Other)
  Sender: FDA-Public Use
  Company Number: SE-MYLANLABS-2018M1092111

PATIENT
  Age: 42 Year
  Sex: Female

DRUGS (3)
  1. PEGFILGRASTIM [Suspect]
     Active Substance: PEGFILGRASTIM
     Indication: PROPHYLAXIS
     Route: 065
  2. DOCETAXEL. [Suspect]
     Active Substance: DOCETAXEL
     Indication: BREAST CANCER STAGE II
     Dosage: EVERY THREE WEEKS FOR ONE CYCLE
     Route: 042
  3. EPIRUBICIN [Suspect]
     Active Substance: EPIRUBICIN
     Indication: BREAST CANCER STAGE II
     Dosage: EVERY THREE WEEKS FOR ONE CYCLE
     Route: 042

REACTIONS (7)
  - Intestinal perforation [Fatal]
  - Septic shock [Fatal]
  - Drug ineffective [Unknown]
  - Febrile neutropenia [Fatal]
  - Cardiac arrest [Fatal]
  - Neutropenic colitis [Fatal]
  - Toxicity to various agents [Fatal]
